FAERS Safety Report 21126970 (Version 1)
Quarter: 2022Q3

REPORT INFORMATION
  Report Type: Spontaneous
  Country: US (occurrence: US)
  Receive Date: 20220725
  Receipt Date: 20220725
  Transmission Date: 20221027
  Serious: No
  Sender: FDA-Public Use
  Company Number: US-ABBVIE-21K-163-4041206-00

PATIENT
  Sex: Female

DRUGS (9)
  1. SYNTHROID [Suspect]
     Active Substance: LEVOTHYROXINE SODIUM
     Indication: Hypothyroidism
     Dosage: CHANGED TO GENERIC
     Route: 048
     Dates: start: 2001, end: 2016
  2. SYNTHROID [Suspect]
     Active Substance: LEVOTHYROXINE SODIUM
     Route: 048
     Dates: start: 2016
  3. LEVOTHYROXINE [Suspect]
     Active Substance: LEVOTHYROXINE
     Indication: Hypothyroidism
     Dosage: SWITCHED BACK TO BRAND
     Route: 048
     Dates: start: 2016, end: 2016
  4. LEVOTHYROXINE [Suspect]
     Active Substance: LEVOTHYROXINE
     Indication: Thyroidectomy
  5. MACA [Concomitant]
     Indication: Menopause
  6. ASTAXANTHIN [Concomitant]
     Active Substance: ASTAXANTHIN
     Indication: Skin atrophy
  7. FISH OIL [Concomitant]
     Active Substance: FISH OIL
     Indication: Dry eye
  8. MODERNA COVID-19 VACCINE [Concomitant]
     Active Substance: ELASOMERAN
     Indication: COVID-19 immunisation
     Dosage: MODERNA MANUFACTURER
     Route: 030
     Dates: start: 20210408, end: 20210408
  9. MODERNA COVID-19 VACCINE [Concomitant]
     Active Substance: ELASOMERAN
     Dosage: MODERNA MANUFACTURER
     Route: 030
     Dates: start: 20210506, end: 20210506

REACTIONS (1)
  - Urticaria [Recovering/Resolving]

NARRATIVE: CASE EVENT DATE: 20160101
